FAERS Safety Report 23281595 (Version 2)
Quarter: 2024Q1

REPORT INFORMATION
  Report Type: Spontaneous
  Country: DE (occurrence: None)
  Receive Date: 20231211
  Receipt Date: 20240116
  Transmission Date: 20240410
  Serious: Yes (Hospitalization)
  Sender: FDA-Public Use
  Company Number: DE-ROCHE-3431722

PATIENT
  Age: 65 Year
  Sex: Female
  Weight: 68 kg

DRUGS (3)
  1. VABYSMO [Suspect]
     Active Substance: FARICIMAB\FARICIMAB-SVOA
     Indication: Neovascular age-related macular degeneration
     Dosage: LEFT EYE
     Route: 050
     Dates: start: 20230522, end: 20230830
  2. RAMIPRIL [Concomitant]
     Active Substance: RAMIPRIL
     Indication: Hypertension
     Route: 048
  3. METOPROLOL [Concomitant]
     Active Substance: METOPROLOL
     Indication: Hypertension
     Route: 048

REACTIONS (7)
  - Foreign body in eye [Unknown]
  - Iridocyclitis [Recovered/Resolved]
  - Uveitis [Recovered/Resolved]
  - Vasculitis [Recovering/Resolving]
  - Retinal vascular disorder [Recovered/Resolved]
  - Blood pressure increased [Recovering/Resolving]
  - Ocular hypertension [Recovering/Resolving]

NARRATIVE: CASE EVENT DATE: 20230830
